FAERS Safety Report 11713056 (Version 3)
Quarter: 2015Q4

REPORT INFORMATION
  Report Type: Spontaneous
  Country: US (occurrence: US)
  Receive Date: 20151109
  Receipt Date: 20151217
  Transmission Date: 20160304
  Serious: Yes (Hospitalization, Other)
  Sender: FDA-Public Use
  Company Number: US-AMGEN-USASP2015115512

PATIENT
  Age: 76 Year
  Sex: Female
  Weight: 58.5 kg

DRUGS (7)
  1. MIRALAX [Concomitant]
     Active Substance: POLYETHYLENE GLYCOL 3350
  2. PROLIA [Suspect]
     Active Substance: DENOSUMAB
     Indication: OSTEOPOROSIS POSTMENOPAUSAL
     Dosage: 60 MG, UNK
     Route: 030
     Dates: start: 20151028
  3. VITAMIN C [Concomitant]
     Active Substance: ASCORBIC ACID
  4. FLECAINIDE                         /00627102/ [Concomitant]
     Dosage: 100 MG, BID
  5. CALCIUM [Concomitant]
     Active Substance: CALCIUM
  6. VITAMIN D3 [Concomitant]
     Active Substance: CHOLECALCIFEROL
  7. OMEPRAZOLE. [Concomitant]
     Active Substance: OMEPRAZOLE
     Dosage: UNK

REACTIONS (35)
  - Hypotension [Unknown]
  - Diverticulitis [Unknown]
  - Chest pain [Unknown]
  - Essential hypertension [Unknown]
  - Dry mouth [Unknown]
  - Sinus node dysfunction [Unknown]
  - Loss of consciousness [Recovered/Resolved]
  - Colon cancer [Unknown]
  - Vitamin D deficiency [Unknown]
  - Malaise [Unknown]
  - Atrial fibrillation [Unknown]
  - Hyperlipidaemia [Unknown]
  - Dysuria [Unknown]
  - Hypoacusis [Unknown]
  - Incorrect route of drug administration [Unknown]
  - Soft tissue disorder [Unknown]
  - Dehydration [Unknown]
  - Blood magnesium decreased [Unknown]
  - Blood electrolytes decreased [Recovered/Resolved]
  - Dry eye [Unknown]
  - Nausea [Unknown]
  - Diverticulum intestinal [Unknown]
  - Gastrooesophageal reflux disease [Unknown]
  - Dizziness [Recovered/Resolved]
  - Mitral valve incompetence [Unknown]
  - Thirst [Unknown]
  - Osteoporosis [Unknown]
  - Blood calcium decreased [Unknown]
  - Pain [Unknown]
  - Urinary incontinence [Unknown]
  - Aortic calcification [Unknown]
  - Fatigue [Unknown]
  - Asthenia [Unknown]
  - Blood potassium decreased [Unknown]
  - Osteoarthritis [Unknown]

NARRATIVE: CASE EVENT DATE: 2015
